FAERS Safety Report 8059800-1 (Version None)
Quarter: 2012Q1

REPORT INFORMATION
  Report Type: 
  Country: None (occurrence: None)
  Receive Date: 20120120
  Receipt Date: 20120118
  Transmission Date: 20120608
  Serious: Yes (Death, Hospitalization, Other)
  Sender: FDA-Public Use
  Company Number: PHHO2011CN019091

PATIENT
  Sex: Male
  Weight: 65.8 kg

DRUGS (10)
  1. RAMIPRIL [Suspect]
  2. INSULIN [Concomitant]
     Indication: DIABETES MELLITUS
     Dosage: 25 IU, UNK
     Dates: start: 20110429
  3. ENALAPRIL MALEATE [Suspect]
     Indication: CARDIAC FAILURE CHRONIC
     Dosage: SCREENING PHASE
  4. ISOSORBIDE MONONITRATE [Suspect]
  5. BLINDED NO TREATMENT RECEIVED [Suspect]
     Indication: CARDIAC FAILURE CHRONIC
     Dosage: SCREENING PHASE
  6. ASPIRIN [Concomitant]
     Indication: PLATELET AGGREGATION
     Dosage: 100 MG, QD
     Route: 048
     Dates: start: 20110823
  7. VALSARTAN [Suspect]
     Indication: CARDIAC FAILURE CHRONIC
     Dosage: SINGLE BLIND
     Route: 048
     Dates: start: 20111218
  8. METOPROLOL [Suspect]
  9. ATORVASTATIN [Concomitant]
     Indication: HYPERLIPIDAEMIA
     Dosage: 20 MG, QD
     Route: 048
     Dates: start: 20110823
  10. VALSARTAN [Suspect]
     Indication: CARDIAC FAILURE CHRONIC
     Dosage: SCREENING PHASE

REACTIONS (7)
  - FATIGUE [None]
  - COUGH [None]
  - DYSPNOEA [None]
  - ANGINA UNSTABLE [None]
  - CORONARY ARTERY DISEASE [None]
  - CARDIAC FAILURE [None]
  - SUDDEN CARDIAC DEATH [None]
